FAERS Safety Report 4360420-0 (Version None)
Quarter: 2004Q2

REPORT INFORMATION
  Report Type: 
  Country: None (occurrence: None)
  Receive Date: 20040514
  Receipt Date: 20040503
  Transmission Date: 20050107
  Serious: Yes (Hospitalization)
  Sender: FDA-Public Use
  Company Number: A005496

PATIENT
  Sex: Male

DRUGS (9)
  1. SERTRALINE HCL [Suspect]
     Indication: OBSESSIVE-COMPULSIVE DISORDER
     Dosage: 150 MG (DAILY), ORAL
     Route: 048
     Dates: start: 19930101, end: 20000201
  2. LUVOX [Suspect]
     Indication: OBSESSIVE-COMPULSIVE DISORDER
     Dosage: ORAL
     Route: 048
     Dates: start: 19980101, end: 19980101
  3. RISPERDAL [Suspect]
     Indication: TOURETTE'S DISORDER
     Dosage: (DAILY), ORAL
     Route: 048
     Dates: start: 19980101, end: 19980101
  4. FLORINEF [Concomitant]
  5. VITAMINS (VITAMINS) [Concomitant]
  6. ACIDOPHYLLUS (LACTOBACILLUS ACIDOPHILUS) [Concomitant]
  7. TYLENOL [Concomitant]
  8. IBUPROFEN [Concomitant]
  9. ASPIRIN [Concomitant]

REACTIONS (19)
  - ABDOMINAL PAIN [None]
  - BLOOD PRESSURE FLUCTUATION [None]
  - DRUG INEFFECTIVE [None]
  - FEELING ABNORMAL [None]
  - HEADACHE [None]
  - HEART RATE IRREGULAR [None]
  - HEAT EXHAUSTION [None]
  - INTRAOCULAR PRESSURE TEST ABNORMAL [None]
  - MUSCLE RIGIDITY [None]
  - OROPHARYNGEAL SWELLING [None]
  - ORTHOSTATIC HYPOTENSION [None]
  - PAIN [None]
  - PARAESTHESIA [None]
  - PHAEOCHROMOCYTOMA [None]
  - SEROTONIN SYNDROME [None]
  - SKIN DISCOLOURATION [None]
  - THYROID DISORDER [None]
  - TOURETTE'S DISORDER [None]
  - WEIGHT FLUCTUATION [None]
